FAERS Safety Report 12801080 (Version 1)
Quarter: 2016Q4

REPORT INFORMATION
  Report Type: Spontaneous
  Country: US (occurrence: US)
  Receive Date: 20161003
  Receipt Date: 20161003
  Transmission Date: 20170207
  Serious: No
  Sender: FDA-Public Use
  Company Number: US-ACTELION-A-US2016-142825

PATIENT
  Age: 68 Year
  Sex: Female

DRUGS (23)
  1. ALBUTEROL. [Concomitant]
     Active Substance: ALBUTEROL
     Dosage: 0.083 %, UNK
  2. GABAPENTIN. [Concomitant]
     Active Substance: GABAPENTIN
     Dosage: 400 MG, UNK
  3. METHADONE [Concomitant]
     Active Substance: METHADONE HYDROCHLORIDE
  4. MULTIVITAMIN [Concomitant]
     Active Substance: VITAMINS
  5. COPAXONE [Concomitant]
     Active Substance: GLATIRAMER ACETATE
  6. PRILOCAINE [Concomitant]
     Active Substance: PRILOCAINE
  7. DULOXETINE. [Concomitant]
     Active Substance: DULOXETINE
     Dosage: 60 MG, UNK
  8. IMODIUM [Concomitant]
     Active Substance: LOPERAMIDE HYDROCHLORIDE
     Dosage: 2 MG, UNK
  9. AMLODIPINE [Concomitant]
     Active Substance: AMLODIPINE BESYLATE
     Dosage: 10 MG, UNK
  10. PREDNISONE. [Concomitant]
     Active Substance: PREDNISONE
     Dosage: 5 MG, UNK
  11. LIDOCAINE. [Concomitant]
     Active Substance: LIDOCAINE
  12. AMOXICILLIN. [Concomitant]
     Active Substance: AMOXICILLIN
  13. IRON [Concomitant]
     Active Substance: IRON
  14. OSCAL [Concomitant]
     Active Substance: CALCIUM CARBONATE
     Dosage: 500/200 TAB
  15. CEPHALEXIN. [Concomitant]
     Active Substance: CEPHALEXIN
     Dosage: 500 MG, UNK
  16. CLONAZEPAM. [Concomitant]
     Active Substance: CLONAZEPAM
     Dosage: 0.5 MG, UNK
  17. FUROSEMIDE. [Concomitant]
     Active Substance: FUROSEMIDE
     Dosage: 20 MG, UNK
  18. VITAMIN D3 [Concomitant]
     Active Substance: CHOLECALCIFEROL
     Dosage: 5000 U, UNK
  19. TRACLEER [Suspect]
     Active Substance: BOSENTAN
     Indication: RHEUMATOID ARTHRITIS
     Dosage: 125 MG, UNK
     Route: 048
  20. ALPRAZOLAM. [Concomitant]
     Active Substance: ALPRAZOLAM
  21. OMEPRAZOLE. [Concomitant]
     Active Substance: OMEPRAZOLE
     Dosage: 20 MG, UNK
  22. TIZANIDINE. [Concomitant]
     Active Substance: TIZANIDINE
     Dosage: 4 MG, UNK
  23. ASPIRIN. [Concomitant]
     Active Substance: ASPIRIN
     Dosage: 325 MG, UNK

REACTIONS (1)
  - Wound infection [Unknown]
